FAERS Safety Report 6936737-X (Version None)
Quarter: 2010Q3

REPORT INFORMATION
  Report Type: 
  Country: None (occurrence: None)
  Receive Date: 20100823
  Receipt Date: 20100811
  Transmission Date: 20110219
  Serious: Yes (Other)
  Sender: FDA-Public Use
  Company Number: US-PFIZER INC-2010101599

PATIENT

DRUGS (2)
  1. DILANTIN-125 [Suspect]
     Dosage: 250 MG DAILY, AT BEDTIME
  2. DILANTIN-125 [Suspect]
     Dosage: 125 MG, 2X/DAY

REACTIONS (1)
  - ANTICONVULSANT DRUG LEVEL INCREASED [None]
